FAERS Safety Report 19227610 (Version 1)
Quarter: 2021Q2

REPORT INFORMATION
  Report Type: Spontaneous
  Country: DE (occurrence: DE)
  Receive Date: 20210506
  Receipt Date: 20210506
  Transmission Date: 20210717
  Serious: No
  Sender: FDA-Public Use
  Company Number: DE-DEXPHARM-20210571

PATIENT
  Age: 69 Year
  Sex: Male
  Weight: 95 kg

DRUGS (4)
  1. PANTOPRAZOL 20MG (PANTOPRAZOLE) [Interacting]
     Active Substance: PANTOPRAZOLE
     Dosage: 1 TABLETTE MORGENS
     Dates: start: 202104, end: 20210412
  2. DICLO DISPERS (DICLOFENAC SODIUM) [Interacting]
     Active Substance: DICLOFENAC SODIUM
     Indication: PAIN IN EXTREMITY
     Dosage: 3?2 AN TAG 1, AN DEN FOLGENDEN TAGEN 2 BIS SCHMERZFREI
     Route: 048
     Dates: start: 20210409, end: 20210412
  3. DEXAMETHASON 4 MG [DEXAMETHASONE SODIUM PHOSPHATE] [Suspect]
     Active Substance: DEXAMETHASONE SODIUM PHOSPHATE
     Dosage: 1 TABLETTE MORGENS
     Dates: start: 20210409, end: 20210412
  4. CANDESARTAN HEUMANN 16 MG TABLETTEN [Interacting]
     Active Substance: CANDESARTAN CILEXETIL
     Indication: HYPERTENSION
     Dosage: 1X MORGENS
     Route: 048
     Dates: start: 20190601, end: 20210412

REACTIONS (3)
  - Hiccups [Recovered/Resolved]
  - Sleep disorder [Unknown]
  - Fatigue [Unknown]

NARRATIVE: CASE EVENT DATE: 20210410
